FAERS Safety Report 25404402 (Version 1)
Quarter: 2025Q2

REPORT INFORMATION
  Report Type: Spontaneous
  Country: TR (occurrence: TR)
  Receive Date: 20250606
  Receipt Date: 20250606
  Transmission Date: 20250717
  Serious: Yes (Death, Other)
  Sender: Y-MABS THERAPEUTICS
  Company Number: TR-Y-MABS THERAPEUTICS, INC.-EAP2025-TR-002018

PATIENT

DRUGS (5)
  1. DANYELZA [Suspect]
     Active Substance: NAXITAMAB-GQGK
     Indication: Neuroblastoma recurrent
     Route: 042
     Dates: start: 20250207, end: 20250207
  2. DANYELZA [Suspect]
     Active Substance: NAXITAMAB-GQGK
     Route: 042
     Dates: start: 20250327, end: 20250327
  3. GRANULOCYTE-MACROPHAGE COLONY-STIMULATING FACTOR [Concomitant]
     Active Substance: GRANULOCYTE-MACROPHAGE COLONY-STIMULATING FACTOR
     Indication: Neuroblastoma recurrent
  4. IRINOTECAN [Concomitant]
     Active Substance: IRINOTECAN
     Indication: Neuroblastoma recurrent
  5. TEMOZOLOMIDE [Concomitant]
     Active Substance: TEMOZOLOMIDE
     Indication: Neuroblastoma recurrent

REACTIONS (3)
  - Acute myeloid leukaemia [Fatal]
  - Intestinal obstruction [Recovered/Resolved]
  - Superior mesenteric artery syndrome [Recovered/Resolved]

NARRATIVE: CASE EVENT DATE: 20250401
